FAERS Safety Report 7568310-7 (Version None)
Quarter: 2011Q2

REPORT INFORMATION
  Report Type: 
  Country: None (occurrence: None)
  Receive Date: 20110623
  Receipt Date: 20110609
  Transmission Date: 20111010
  Serious: Yes (Other)
  Sender: FDA-Public Use
  Company Number: CA-JNJFOC-20110605871

PATIENT
  Sex: Female
  Weight: 84 kg

DRUGS (11)
  1. PREDNISONE [Concomitant]
  2. RAN-PANTOPRAZOLE [Concomitant]
  3. REMICADE [Suspect]
     Indication: PRODUCT USED FOR UNKNOWN INDICATION
     Route: 042
     Dates: start: 20110526
  4. CALCIUM W/VITAMIN D [Concomitant]
     Route: 048
  5. QUETIAPINE [Concomitant]
  6. APO-DIMENHYDRINATE [Concomitant]
  7. RATIO-LACTULOSE [Concomitant]
  8. VENLAFAXINE HYDROCHLORIDE (EFFEXOR XR) [Concomitant]
  9. ZOPICLONE [Concomitant]
  10. APO-LAMOTRIGINE [Concomitant]
  11. PMS-HYDROMORPHONE [Concomitant]
     Dosage: EVERY 4 HOURS

REACTIONS (1)
  - SYNCOPE [None]
